FAERS Safety Report 8966536 (Version 1)
Quarter: 2012Q4

REPORT INFORMATION
  Report Type: 
  Country: US (occurrence: US)
  Receive Date: 20121214
  Receipt Date: 20121214
  Transmission Date: 20130627
  Serious: Yes (Hospitalization, Other)
  Sender: FDA-Public Use
  Company Number: US-ASTRAZENECA-2010SE52123

PATIENT
  Age: 80 Year
  Sex: Female
  Weight: 59 kg

DRUGS (12)
  1. SYMBICORT [Suspect]
     Indication: CHRONIC OBSTRUCTIVE PULMONARY DISEASE
     Dosage: Total daily dosage: 640 MCG, BID.
     Route: 055
  2. CRESTOR [Suspect]
     Route: 048
  3. ASA [Concomitant]
  4. ALBUTEROL [Concomitant]
     Dosage: PRN
  5. XIBROM [Concomitant]
     Indication: MACULAR DEGENERATION
  6. COREG [Concomitant]
  7. VITAMIN D [Concomitant]
     Dosage: QD
  8. PLAVIX [Concomitant]
  9. PEPCID [Concomitant]
  10. TRICOR [Concomitant]
  11. NITROPATCH [Concomitant]
     Dosage: QD
  12. NITROGLYCERINE [Concomitant]
     Dosage: PRN

REACTIONS (1)
  - Diverticulitis [Recovered/Resolved]
